FAERS Safety Report 18349062 (Version 1)
Quarter: 2020Q4

REPORT INFORMATION
  Report Type: Spontaneous
  Country: US (occurrence: US)
  Receive Date: 20201006
  Receipt Date: 20201006
  Transmission Date: 20210114
  Serious: No
  Sender: FDA-Public Use
  Company Number: NVSC2020US269269

PATIENT
  Age: 60 Year
  Sex: Male

DRUGS (1)
  1. LAMISIL [Suspect]
     Active Substance: TERBINAFINE HYDROCHLORIDE
     Indication: FUNGAL SKIN INFECTION
     Dosage: UNK
     Route: 065

REACTIONS (3)
  - Application site erythema [Unknown]
  - Application site irritation [Unknown]
  - Application site paraesthesia [Unknown]

NARRATIVE: CASE EVENT DATE: 20200923
